FAERS Safety Report 9920220 (Version 2)
Quarter: 2014Q1

REPORT INFORMATION
  Report Type: Spontaneous
  Country: FR (occurrence: FR)
  Receive Date: 20140224
  Receipt Date: 20140321
  Transmission Date: 20141002
  Serious: Yes (Other)
  Sender: FDA-Public Use
  Company Number: PHHY2014FR021492

PATIENT
  Age: 60 Year
  Sex: Female

DRUGS (2)
  1. IRINOTECAN [Suspect]
     Indication: COLORECTAL CANCER METASTATIC
     Dosage: 100 MG, UNK
     Dates: start: 201202
  2. IRINOTECAN [Suspect]
     Dosage: 100 MG, UNK
     Dates: start: 201304

REACTIONS (7)
  - Post embolisation syndrome [Unknown]
  - Nausea [Unknown]
  - Vomiting [Unknown]
  - Pain [Unknown]
  - Pyrexia [Unknown]
  - Hepatic enzyme increased [Unknown]
  - Diarrhoea [Unknown]
